FAERS Safety Report 5689257-7 (Version None)
Quarter: 2008Q1

REPORT INFORMATION
  Report Type: 
  Country: None (occurrence: None)
  Receive Date: 20080331
  Receipt Date: 20080319
  Transmission Date: 20080703
  Serious: Yes (Hospitalization)
  Sender: FDA-Public Use
  Company Number: US-ELI_LILLY_AND_COMPANY-US200803001354

PATIENT
  Sex: Female

DRUGS (2)
  1. FORTEO [Suspect]
     Dosage: UNK, UNK
     Route: 058
     Dates: start: 20080101
  2. EXCEDRIN (MIGRAINE) [Concomitant]

REACTIONS (2)
  - HYPERTENSION [None]
  - MIGRAINE [None]
